FAERS Safety Report 20852500 (Version 1)
Quarter: 2022Q2

REPORT INFORMATION
  Report Type: Spontaneous
  Country: US (occurrence: US)
  Receive Date: 20220520
  Receipt Date: 20220520
  Transmission Date: 20220720
  Serious: No
  Sender: FDA-Public Use
  Company Number: US-BRISTOL-MYERS SQUIBB COMPANY-2022-019802

PATIENT
  Age: 52 Year
  Sex: Male

DRUGS (1)
  1. ABRAXANE [Suspect]
     Active Substance: PACLITAXEL
     Indication: Product used for unknown indication
     Dosage: 100MG SDV; FREQ : INFUSE 345MG INTRAVENOUSLY ONE DAYS 1,8AND 15 OF 28-DAY CYCLE

REACTIONS (1)
  - Laboratory test abnormal [Unknown]
